FAERS Safety Report 6423617-1 (Version None)
Quarter: 2009Q4

REPORT INFORMATION
  Report Type: 
  Country: None (occurrence: None)
  Receive Date: 20091102
  Receipt Date: 20091021
  Transmission Date: 20100525
  Serious: Yes (Death, Other)
  Sender: FDA-Public Use
  Company Number: JP-PFIZER INC-2008087616

PATIENT
  Age: 67 Year
  Sex: Male
  Weight: 45 kg

DRUGS (5)
  1. SUNITINIB MALATE [Suspect]
     Indication: GASTROINTESTINAL STROMAL TUMOUR
     Dosage: 50 MG, EVERY DAY
     Route: 048
     Dates: start: 20080804
  2. FERROMIA [Concomitant]
     Route: 048
     Dates: start: 20080804
  3. GASTER [Concomitant]
     Route: 048
  4. BERIZYM [Concomitant]
     Route: 048
  5. LAC B [Concomitant]
     Route: 048

REACTIONS (4)
  - NEUTROPHIL COUNT DECREASED [None]
  - PLATELET COUNT DECREASED [None]
  - SEPSIS [None]
  - THROMBOTIC MICROANGIOPATHY [None]
